FAERS Safety Report 5699942-9 (Version None)
Quarter: 2008Q2

REPORT INFORMATION
  Report Type: 
  Country: None (occurrence: None)
  Receive Date: 20080410
  Receipt Date: 20080401
  Transmission Date: 20081010
  Serious: Yes (Hospitalization)
  Sender: FDA-Public Use
  Company Number: US-MERCK-0804USA00238

PATIENT
  Age: 81 Year
  Sex: Female

DRUGS (3)
  1. DECADRON [Suspect]
     Route: 048
  2. REVLIMID [Suspect]
     Indication: MULTIPLE MYELOMA
     Route: 048
     Dates: start: 20070730
  3. COUMADIN [Concomitant]
     Route: 065

REACTIONS (1)
  - PULMONARY EMBOLISM [None]
